FAERS Safety Report 19427340 (Version 6)
Quarter: 2022Q1

REPORT INFORMATION
  Report Type: Spontaneous
  Country: US (occurrence: None)
  Receive Date: 20210616
  Receipt Date: 20220323
  Transmission Date: 20220424
  Serious: Yes (Other)
  Sender: FDA-Public Use
  Company Number: US-ROCHE-2833223

PATIENT
  Sex: Female

DRUGS (2)
  1. CAPECITABINE [Suspect]
     Active Substance: CAPECITABINE
     Indication: Product used for unknown indication
     Route: 065
  2. TUKYSA [Suspect]
     Active Substance: TUCATINIB
     Indication: Breast cancer female
     Route: 065

REACTIONS (14)
  - Neoplasm [Unknown]
  - Psoriasis [Unknown]
  - Constipation [Unknown]
  - Feeling abnormal [Unknown]
  - Dysphagia [Unknown]
  - Palmar-plantar erythrodysaesthesia syndrome [Unknown]
  - Nail bed infection [Unknown]
  - Pruritus [Unknown]
  - Rash [Unknown]
  - Breast pain [Unknown]
  - Swelling [Unknown]
  - COVID-19 [Unknown]
  - Scab [Unknown]
  - Pulmonary mass [Unknown]
